FAERS Safety Report 9934923 (Version 3)
Quarter: 2015Q2

REPORT INFORMATION
  Report Type: Report from Study
  Country: GR (occurrence: GR)
  Receive Date: 20140228
  Receipt Date: 20150519
  Transmission Date: 20150821
  Serious: Yes (Other)
  Sender: FDA-Public Use
  Company Number: GR-NOVOPROD-384299

PATIENT
  Age: 42 Year
  Sex: Female
  Weight: 76 kg

DRUGS (2)
  1. INSULIN DETEMIR FLEXPEN [Suspect]
     Active Substance: INSULIN DETEMIR
     Dosage: 6 IU, QD
     Route: 065
  2. INSULIN DETEMIR FLEXPEN [Suspect]
     Active Substance: INSULIN DETEMIR
     Indication: GESTATIONAL DIABETES
     Dosage: 4 IU, QD
     Route: 065
     Dates: start: 20130730

REACTIONS (2)
  - Preterm premature rupture of membranes [Recovered/Resolved]
  - Exposure during pregnancy [Recovered/Resolved]

NARRATIVE: CASE EVENT DATE: 20130730
